FAERS Safety Report 13022668 (Version 1)
Quarter: 2016Q4

REPORT INFORMATION
  Report Type: Spontaneous
  Country: CH (occurrence: CH)
  Receive Date: 20161213
  Receipt Date: 20161213
  Transmission Date: 20170207
  Serious: Yes (Death)
  Sender: FDA-Public Use
  Company Number: CH-ACTELION-A-CH2016-146435

PATIENT
  Age: 66 Year
  Sex: Female

DRUGS (6)
  1. REVATIO [Concomitant]
     Active Substance: SILDENAFIL CITRATE
  2. PREDNISONE. [Concomitant]
     Active Substance: PREDNISONE
  3. OPSUMIT [Suspect]
     Active Substance: MACITENTAN
     Indication: PULMONARY ARTERIAL HYPERTENSION
     Dosage: UNK
     Route: 048
     Dates: start: 201505
  4. CELLCEPT [Concomitant]
     Active Substance: MYCOPHENOLATE MOFETIL\MYCOPHENOLATE MOFETIL HYDROCHLORIDE
  5. RITUXIMAB [Concomitant]
     Active Substance: RITUXIMAB
  6. OXYGEN. [Concomitant]
     Active Substance: OXYGEN

REACTIONS (3)
  - Oxygen saturation decreased [Fatal]
  - Circulatory collapse [Fatal]
  - Dyspnoea [Fatal]
